FAERS Safety Report 14166606 (Version 1)
Quarter: 2017Q4

REPORT INFORMATION
  Report Type: Spontaneous
  Country: FR (occurrence: FR)
  Receive Date: 20171107
  Receipt Date: 20171107
  Transmission Date: 20180321
  Serious: Yes (Hospitalization)
  Sender: FDA-Public Use
  Company Number: FR-MERCK KGAA-2033463

PATIENT
  Age: 80 Year
  Sex: Female

DRUGS (1)
  1. NOVOTHYROX [Suspect]
     Active Substance: LEVOTHYROXINE SODIUM
     Indication: PRODUCT USED FOR UNKNOWN INDICATION
     Dates: start: 2017, end: 20171025

REACTIONS (8)
  - Daydreaming [None]
  - Pain in extremity [None]
  - Fatigue [None]
  - Headache [None]
  - Vomiting [None]
  - Asthenia [None]
  - Dry skin [None]
  - Lip pain [None]

NARRATIVE: CASE EVENT DATE: 2017
